FAERS Safety Report 4693827-2 (Version None)
Quarter: 2005Q2

REPORT INFORMATION
  Report Type: 
  Country: None (occurrence: None)
  Receive Date: 20050616
  Receipt Date: 20050607
  Transmission Date: 20051028
  Serious: Yes (Hospitalization)
  Sender: FDA-Public Use
  Company Number: SK-2005-009932

PATIENT
  Sex: Female

DRUGS (1)
  1. SH T 186 D (EE-B-CYCLODEXTRIN/DRSP) [Suspect]
     Indication: ORAL CONTRACEPTION
     Dosage: 1 TAB(S), 1X/DAY, ORAL
     Route: 048
     Dates: start: 20040723

REACTIONS (2)
  - BLINDNESS UNILATERAL [None]
  - EYE INFLAMMATION [None]
